FAERS Safety Report 4736606-X (Version None)
Quarter: 2005Q3

REPORT INFORMATION
  Report Type: 
  Country: None (occurrence: None)
  Receive Date: 20050804
  Receipt Date: 20050804
  Transmission Date: 20060218
  Serious: Yes (Hospitalization)
  Sender: FDA-Public Use
  Company Number: None

PATIENT
  Age: 75 Year
  Sex: Male
  Weight: 80.1 kg

DRUGS (23)
  1. RITUXAN [Suspect]
     Indication: B-CELL LYMPHOMA
     Dosage: 375 MG /M2 IV
     Route: 042
     Dates: start: 20050609
  2. RITUXAN [Suspect]
     Indication: B-CELL LYMPHOMA
     Dosage: 375 MG /M2 IV
     Route: 042
     Dates: start: 20050630
  3. RITUXAN [Suspect]
     Indication: B-CELL LYMPHOMA
     Dosage: 375 MG /M2 IV
     Route: 042
     Dates: start: 20050721
  4. CYTOXAN [Suspect]
     Indication: B-CELL LYMPHOMA
     Dosage: 750 MG /M2 IV
     Route: 042
     Dates: start: 20050609
  5. CYTOXAN [Suspect]
     Indication: B-CELL LYMPHOMA
     Dosage: 750 MG /M2 IV
     Route: 042
     Dates: start: 20050630
  6. CYTOXAN [Suspect]
     Indication: B-CELL LYMPHOMA
     Dosage: 750 MG /M2 IV
     Route: 042
     Dates: start: 20050721
  7. DOXORUBICIN HCL [Suspect]
     Indication: B-CELL LYMPHOMA
     Dosage: 50 MG/M2 IV
     Route: 042
     Dates: start: 20050609
  8. DOXORUBICIN HCL [Suspect]
     Indication: B-CELL LYMPHOMA
     Dosage: 50 MG/M2 IV
     Route: 042
     Dates: start: 20050630
  9. DOXORUBICIN HCL [Suspect]
     Indication: B-CELL LYMPHOMA
     Dosage: 50 MG/M2 IV
     Route: 042
     Dates: start: 20050721
  10. VINCRISTINE [Suspect]
     Indication: B-CELL LYMPHOMA
     Dosage: 2 MG/M2 IV
     Route: 042
     Dates: start: 20050609
  11. VINCRISTINE [Suspect]
     Indication: B-CELL LYMPHOMA
     Dosage: 2 MG/M2 IV
     Route: 042
     Dates: start: 20050630
  12. VINCRISTINE [Suspect]
     Indication: B-CELL LYMPHOMA
     Dosage: 2 MG/M2 IV
     Route: 042
     Dates: start: 20050721
  13. PREDNISONE [Suspect]
     Indication: B-CELL LYMPHOMA
     Dosage: 100 MG/M2
     Dates: start: 20050609, end: 20050613
  14. PREDNISONE [Suspect]
     Indication: B-CELL LYMPHOMA
     Dosage: 100 MG/M2
     Dates: start: 20050630, end: 20050704
  15. PREDNISONE [Suspect]
     Indication: B-CELL LYMPHOMA
     Dosage: 100 MG/M2
     Dates: start: 20050721, end: 20050725
  16. ATENOLOL [Concomitant]
  17. ASPIRIN [Concomitant]
  18. PRILOSEC [Concomitant]
  19. METAMUCIL [Concomitant]
  20. MULTI-VITAMIN [Concomitant]
  21. COMPAZINE [Concomitant]
  22. ATIVAN [Concomitant]
  23. BACTRIM DS [Concomitant]

REACTIONS (1)
  - LARGE INTESTINE PERFORATION [None]
